FAERS Safety Report 8509363 (Version 3)
Quarter: 2012Q4

REPORT INFORMATION
  Report Type: Report from Study
  Country: KR (occurrence: KR)
  Receive Date: 20120412
  Receipt Date: 20120928
  Transmission Date: 20130627
  Serious: Yes (Other)
  Sender: FDA-Public Use
  Company Number: KR-ABBOTT-12P-090-0924202-00

PATIENT
  Age: 43 Year
  Sex: Male
  Weight: 77 kg

DRUGS (5)
  1. KALETRA TABLETS [Suspect]
     Indication: HIV INFECTION
     Dosage: 4 tablets (2 in 1 day)
     Route: 048
     Dates: start: 20100709
  2. ABC [Concomitant]
     Dosage: 500 mg
     Route: 048
     Dates: start: 20100709
  3. KLARICID [Concomitant]
     Indication: PROPHYLAXIS
     Dosage: 1000mg daily
     Dates: start: 20100701, end: 20110601
  4. SEPTRIN [Concomitant]
     Indication: PROPHYLAXIS
     Dosage: 2 tab
     Route: 048
     Dates: start: 20100708
  5. 3TC [Concomitant]
     Indication: ANTIRETROVIRAL THERAPY
     Dosage: 300mg
     Route: 048
     Dates: start: 20100709

REACTIONS (2)
  - Cirrhosis alcoholic [Not Recovered/Not Resolved]
  - Hypertriglyceridaemia [Not Recovered/Not Resolved]
